FAERS Safety Report 15621309 (Version 1)
Quarter: 2018Q4

REPORT INFORMATION
  Report Type: Spontaneous
  Country: GB (occurrence: GB)
  Receive Date: 20181115
  Receipt Date: 20181115
  Transmission Date: 20190205
  Serious: Yes (Hospitalization, Other)
  Sender: FDA-Public Use
  Company Number: GB-BRISTOL-MYERS SQUIBB COMPANY-BMS-2018-105706

PATIENT
  Age: 50 Year
  Sex: Female

DRUGS (1)
  1. APIXABAN [Suspect]
     Active Substance: APIXABAN
     Indication: PULMONARY EMBOLISM
     Dosage: 10 MG, UNK
     Route: 048
     Dates: start: 20180801

REACTIONS (3)
  - Deep vein thrombosis [Unknown]
  - Intermittent claudication [Unknown]
  - Treatment failure [Unknown]

NARRATIVE: CASE EVENT DATE: 20180919
